FAERS Safety Report 23533708 (Version 1)
Quarter: 2024Q1

REPORT INFORMATION
  Report Type: Spontaneous
  Country: NO (occurrence: NO)
  Receive Date: 20240216
  Receipt Date: 20240216
  Transmission Date: 20240410
  Serious: Yes (Hospitalization)
  Sender: FDA-Public Use
  Company Number: NO-REGENERON PHARMACEUTICALS, INC.-2024-031801

PATIENT
  Age: 76 Year
  Sex: Female

DRUGS (1)
  1. LIBTAYO [Suspect]
     Active Substance: CEMIPLIMAB-RWLC
     Indication: Non-small cell lung cancer
     Dosage: 350 MG
     Route: 042
     Dates: start: 20231227, end: 20231227

REACTIONS (3)
  - Pain [Recovering/Resolving]
  - Synovitis [Recovering/Resolving]
  - Dermatitis [Recovered/Resolved]

NARRATIVE: CASE EVENT DATE: 20240101
